FAERS Safety Report 6785856-X (Version None)
Quarter: 2010Q2

REPORT INFORMATION
  Report Type: 
  Country: None (occurrence: None)
  Receive Date: 20100623
  Receipt Date: 20100618
  Transmission Date: 20101027
  Serious: Yes (Other)
  Sender: FDA-Public Use
  Company Number: US-PFIZER INC-2010061170

PATIENT
  Sex: Female
  Weight: 57.596 kg

DRUGS (4)
  1. OGEN [Suspect]
     Indication: NIGHT SWEATS
     Dosage: UNK
     Dates: end: 20100101
  2. ESTROPIPATE [Suspect]
     Dosage: UNK
     Dates: start: 20100101
  3. PREMARIN [Suspect]
  4. DARIFENACIN [Concomitant]
     Dosage: UNK

REACTIONS (3)
  - ABDOMINAL PAIN [None]
  - HYPERSENSITIVITY [None]
  - MUSCLE SPASMS [None]
